FAERS Safety Report 5333291-3 (Version None)
Quarter: 2007Q2

REPORT INFORMATION
  Report Type: 
  Country: None (occurrence: None)
  Receive Date: 20070521
  Receipt Date: 20070508
  Transmission Date: 20071010
  Serious: Yes (Hospitalization)
  Sender: FDA-Public Use
  Company Number: 230473K06USA

PATIENT
  Age: 46 Year
  Sex: Female
  Weight: 81.6475 kg

DRUGS (2)
  1. REBIF [Suspect]
     Indication: MULTIPLE SCLEROSIS
     Dosage: 44 MCG, 3 IN 1 WEEKS, SUBCUTANEOUS
     Route: 058
     Dates: start: 20050512, end: 20060101
  2. DYAZIDE [Concomitant]

REACTIONS (4)
  - DYSPNOEA [None]
  - NEUTRALISING ANTIBODIES [None]
  - PALPITATIONS [None]
  - VENTRICULAR EXTRASYSTOLES [None]
